FAERS Safety Report 5416245-8 (Version None)
Quarter: 2007Q3

REPORT INFORMATION
  Report Type: 
  Country: None (occurrence: None)
  Receive Date: 20070718
  Receipt Date: 20070212
  Transmission Date: 20080115
  Serious: Yes (Other)
  Sender: FDA-Public Use
  Company Number: 2007012080

PATIENT
  Sex: Male

DRUGS (1)
  1. CELEBREX [Suspect]
     Indication: FALL
     Dates: start: 20040101

REACTIONS (3)
  - ALOPECIA [None]
  - DEPRESSION [None]
  - FALL [None]
